FAERS Safety Report 6915350-4 (Version None)
Quarter: 2010Q3

REPORT INFORMATION
  Report Type: 
  Country: None (occurrence: None)
  Receive Date: 20100809
  Receipt Date: 20100222
  Transmission Date: 20110219
  Serious: No
  Sender: FDA-Public Use
  Company Number: US-ABBOTT-10P-163-0623535-00

PATIENT
  Sex: Male

DRUGS (2)
  1. DEPAKOTE ER [Suspect]
     Indication: BIPOLAR DISORDER
     Route: 048
  2. RISPERDAL CONSTA [Concomitant]
     Indication: SCHIZOPHRENIA
     Dosage: UNKNOWN DOSE

REACTIONS (1)
  - TINNITUS [None]
